FAERS Safety Report 11799637 (Version 2)
Quarter: 2015Q4

REPORT INFORMATION
  Report Type: Spontaneous
  Country: US (occurrence: US)
  Receive Date: 20151203
  Receipt Date: 20151204
  Transmission Date: 20160305
  Serious: No
  Sender: FDA-Public Use
  Company Number: US-EISAI MEDICAL RESEARCH-EC-2015-012505

PATIENT
  Sex: Female

DRUGS (2)
  1. LENVIMA [Suspect]
     Active Substance: LENVATINIB
     Indication: PARAGANGLION NEOPLASM MALIGNANT
     Route: 048
     Dates: start: 201507, end: 201507
  2. LENVIMA [Suspect]
     Active Substance: LENVATINIB
     Route: 048
     Dates: start: 2015

REACTIONS (2)
  - Pyrexia [Recovered/Resolved]
  - Blood uric acid increased [Recovered/Resolved]

NARRATIVE: CASE EVENT DATE: 201507
